FAERS Safety Report 21913323 (Version 1)
Quarter: 2023Q1

REPORT INFORMATION
  Report Type: Spontaneous
  Country: US (occurrence: US)
  Receive Date: 20230125
  Receipt Date: 20230125
  Transmission Date: 20230417
  Serious: No
  Sender: FDA-Public Use
  Company Number: US-ALLERGAN-2240132US

PATIENT
  Age: 59 Year
  Sex: Female

DRUGS (1)
  1. BOTOX COSMETIC [Suspect]
     Active Substance: ONABOTULINUMTOXINA
     Indication: Skin wrinkling
     Dosage: UNK, SINGLE
     Dates: start: 20221205, end: 20221205

REACTIONS (4)
  - Herpes zoster [Unknown]
  - Ear infection [Unknown]
  - Malaise [Unknown]
  - Facial paralysis [Unknown]

NARRATIVE: CASE EVENT DATE: 20221201
